FAERS Safety Report 10278878 (Version 3)
Quarter: 2014Q3

REPORT INFORMATION
  Report Type: Report from Study
  Country: BR (occurrence: BR)
  Receive Date: 20140706
  Receipt Date: 20140815
  Transmission Date: 20150326
  Serious: Yes (Death, Hospitalization, Other)
  Sender: FDA-Public Use
  Company Number: PHHY2014BR082691

PATIENT
  Age: 12 Year
  Sex: Female
  Weight: 24 kg

DRUGS (6)
  1. ZOTEON PODHALER [Suspect]
     Active Substance: TOBRAMYCIN
     Indication: CYSTIC FIBROSIS
     Dosage: 2 DF, BID
     Route: 055
     Dates: end: 20140615
  2. PULMOZYME [Suspect]
     Active Substance: DORNASE ALFA
     Indication: SECRETION DISCHARGE
     Dosage: 1 DF (AMPOULE), DAILY
  3. PANCREASE MT [Concomitant]
     Active Substance: PANCRELIPASE
     Indication: SUPPLEMENTATION THERAPY
     Dosage: UNK (2 CAPSULES ON LUNCH AND DINNER AND 1 CAPSULE IN OTHER MEALS)
  4. AZITHROMYCIN [Concomitant]
     Active Substance: AZITHROMYCIN ANHYDROUS
     Indication: SECRETION DISCHARGE
     Dosage: UNK UKN, BID
  5. VITAMINS NOS [Concomitant]
     Active Substance: VITAMINS
     Dosage: UNK UKN, UNK
  6. ZOTEON PODHALER [Suspect]
     Active Substance: TOBRAMYCIN
     Indication: CHEST DISCOMFORT

REACTIONS (9)
  - Respiratory disorder [Fatal]
  - Lung disorder [Recovering/Resolving]
  - Fatigue [Fatal]
  - Anaemia [Recovering/Resolving]
  - Hypopnoea [Recovering/Resolving]
  - Increased bronchial secretion [Recovering/Resolving]
  - Drug dependence [Fatal]
  - Tremor [Fatal]
  - Haematemesis [Recovering/Resolving]

NARRATIVE: CASE EVENT DATE: 20140618
